FAERS Safety Report 9717708 (Version 2)
Quarter: 2013Q4

REPORT INFORMATION
  Report Type: Spontaneous
  Country: US (occurrence: None)
  Receive Date: 20131125
  Receipt Date: 20131129
  Transmission Date: 20140711
  Serious: Yes (Hospitalization)
  Sender: FDA-Public Use
  Company Number: 2013SGN00726

PATIENT
  Age: 70 Year
  Sex: Female
  Weight: 70.3 kg

DRUGS (8)
  1. BRENTUXIMAB VEDOTIN [Suspect]
     Indication: DIFFUSE LARGE B-CELL LYMPHOMA
     Dosage: 1.8 MG/KG, Q21D, INTRAVENOUS
     Route: 042
     Dates: start: 20131031, end: 20131031
  2. RITUXIMAB [Suspect]
     Indication: DIFFUSE LARGE B-CELL LYMPHOMA
     Dosage: 375 MG/M2, Q21D, INTRAVENOUS
     Route: 042
     Dates: start: 20131031, end: 20131031
  3. CYCLOPHOSPHAMIDE [Suspect]
     Indication: DIFFUSE LARGE B-CELL LYMPHOMA
     Dosage: 750 MG/M2, Q21D, INTRAVENOUS
     Route: 042
     Dates: start: 20131031, end: 20131031
  4. DOXORUBICIN (DOXORUBICIN) INJECTION [Suspect]
     Indication: DIFFUSE LARGE B-CELL LYMPHOMA
     Dosage: 50 MG/M2, Q21D, INTRAVENOUS
     Route: 042
     Dates: start: 20131031, end: 20131031
  5. VINCRISTINE (VINCRISTINE) INJECTION [Suspect]
     Indication: DIFFUSE LARGE B-CELL LYMPHOMA
     Dosage: 1.4 MG/M2, Q21D, INTRAVENOUS
     Route: 042
     Dates: start: 20131031, end: 20131031
  6. PREDNISONE [Suspect]
     Indication: DIFFUSE LARGE B-CELL LYMPHOMA
     Dosage: 100 MG, QCYCLE, ORAL
     Route: 048
     Dates: start: 20131031, end: 20131031
  7. LISINOPRIL + HYDROCHLOROTHIAZIDE (HYDROCHLOROTHIAZIDE, LISINOPRIL) [Concomitant]
  8. PILOCARPINE (PILOCARPINE HYDROCHLORIDE) [Concomitant]

REACTIONS (7)
  - Hypotension [None]
  - Pancytopenia [None]
  - Febrile neutropenia [None]
  - Nausea [None]
  - Vomiting [None]
  - Dehydration [None]
  - Dry mouth [None]
